FAERS Safety Report 15173331 (Version 1)
Quarter: 2018Q3

REPORT INFORMATION
  Report Type: Spontaneous
  Country: IE (occurrence: IE)
  Receive Date: 20180720
  Receipt Date: 20180720
  Transmission Date: 20181010
  Serious: Yes (Hospitalization, Disabling, Other)
  Sender: FDA-Public Use
  Company Number: IE-APOTEX-2017AP021350

PATIENT
  Age: 79 Year
  Sex: Male

DRUGS (1)
  1. TORVAN FILM?COATED TABLETS [Suspect]
     Active Substance: ATORVASTATIN CALCIUM
     Indication: PRODUCT USED FOR UNKNOWN INDICATION
     Dosage: 40 MG, DAILY
     Route: 065

REACTIONS (4)
  - Blood calcium decreased [None]
  - Vitamin D decreased [None]
  - Immune-mediated necrotising myopathy [Recovered/Resolved with Sequelae]
  - Transaminases increased [None]
